FAERS Safety Report 8119277-4 (Version None)
Quarter: 2012Q1

REPORT INFORMATION
  Report Type: 
  Country: None (occurrence: None)
  Receive Date: 20120207
  Receipt Date: 20120126
  Transmission Date: 20120608
  Serious: Yes (Hospitalization, Other)
  Sender: FDA-Public Use
  Company Number: US-ELI_LILLY_AND_COMPANY-US201201008952

PATIENT
  Sex: Female

DRUGS (6)
  1. CYMBALTA [Suspect]
     Dosage: 60 MG, QD
     Dates: end: 20120125
  2. CYMBALTA [Suspect]
     Indication: NEURALGIA
     Dosage: 30 MG, QD
     Dates: start: 20111226
  3. LISINOPRIL                              /USA/ [Concomitant]
  4. CYMBALTA [Suspect]
     Dosage: UNK, UNKNOWN
  5. SIMVASTATIN [Concomitant]
  6. LOPRESSOR [Concomitant]
     Dosage: 25 MG, QD

REACTIONS (10)
  - PALLOR [None]
  - OFF LABEL USE [None]
  - CHROMATURIA [None]
  - OCULAR ICTERUS [None]
  - MALAISE [None]
  - WRONG TECHNIQUE IN DRUG USAGE PROCESS [None]
  - INCORRECT DOSE ADMINISTERED [None]
  - HEPATIC ENZYME INCREASED [None]
  - DECREASED APPETITE [None]
  - DEATH OF RELATIVE [None]
